FAERS Safety Report 23256119 (Version 1)
Quarter: 2023Q4

REPORT INFORMATION
  Report Type: Spontaneous
  Country: US (occurrence: US)
  Receive Date: 20231204
  Receipt Date: 20231204
  Transmission Date: 20240110
  Serious: Yes (Other)
  Sender: FDA-Public Use
  Company Number: US-NOVOPROD-1146899

PATIENT
  Sex: Female

DRUGS (1)
  1. OZEMPIC [Suspect]
     Active Substance: SEMAGLUTIDE
     Indication: Product used for unknown indication
     Dosage: UNK
     Route: 058
     Dates: start: 20230531, end: 202311

REACTIONS (2)
  - Uterine cancer [Not Recovered/Not Resolved]
  - Uterine leiomyoma [Not Recovered/Not Resolved]

NARRATIVE: CASE EVENT DATE: 20230101
